FAERS Safety Report 17655408 (Version 8)
Quarter: 2022Q2

REPORT INFORMATION
  Report Type: Spontaneous
  Country: US (occurrence: US)
  Receive Date: 20200410
  Receipt Date: 20220510
  Transmission Date: 20220721
  Serious: No
  Sender: FDA-Public Use
  Company Number: US-PFIZER INC-2020141017

PATIENT
  Age: 66 Year
  Sex: Female
  Weight: 74 kg

DRUGS (12)
  1. LYRICA [Suspect]
     Active Substance: PREGABALIN
     Indication: Pain
     Dosage: 100 MG, 2X/DAY (ONE AT THE NIGHT AND ONE IN THE MORNING)
     Route: 048
     Dates: start: 2009
  2. LYRICA [Suspect]
     Active Substance: PREGABALIN
     Indication: Procedural pain
     Dosage: UNK
  3. LYRICA [Suspect]
     Active Substance: PREGABALIN
     Indication: Neuropathy peripheral
  4. LYRICA [Suspect]
     Active Substance: PREGABALIN
     Indication: Polyneuropathy
  5. LYRICA [Suspect]
     Active Substance: PREGABALIN
     Indication: Hypoaesthesia
  6. LYRICA [Suspect]
     Active Substance: PREGABALIN
     Indication: Diabetic neuropathy
  7. HYDROCODONE [Suspect]
     Active Substance: HYDROCODONE
     Indication: Muscle spasms
     Dosage: UNK(7.5/325 MG)
  8. HYDROCODONE [Suspect]
     Active Substance: HYDROCODONE
     Indication: Pain
  9. OXYCODONE [Suspect]
     Active Substance: OXYCODONE
     Dosage: UNK
  10. PERCOCET [Concomitant]
     Active Substance: ACETAMINOPHEN\OXYCODONE HYDROCHLORIDE
     Indication: Pain
     Dosage: UNK, 1X/DAY
  11. PERCOCET [Concomitant]
     Active Substance: ACETAMINOPHEN\OXYCODONE HYDROCHLORIDE
     Indication: Muscle spasms
  12. DULOXETINE [Concomitant]
     Active Substance: DULOXETINE
     Indication: Blood pressure abnormal
     Dosage: 30 MG, 2X/DAY (TWO CAPSULE, ONE IN MORNING ONE IN NIGHT)

REACTIONS (9)
  - Drug ineffective [Unknown]
  - Intentional product misuse [Unknown]
  - Therapeutic product effect delayed [Unknown]
  - Hypertension [Unknown]
  - Blood cholesterol increased [Unknown]
  - Anxiety [Unknown]
  - Panic reaction [Unknown]
  - Pain [Unknown]
  - Muscle spasms [Unknown]

NARRATIVE: CASE EVENT DATE: 20090101
